FAERS Safety Report 14844476 (Version 1)
Quarter: 2018Q2

REPORT INFORMATION
  Report Type: Spontaneous
  Country: CA (occurrence: CA)
  Receive Date: 20180503
  Receipt Date: 20180503
  Transmission Date: 20180711
  Serious: Yes (Hospitalization)
  Sender: FDA-Public Use
  Company Number: CA-TEVA-2018-CA-886740

PATIENT
  Age: 48 Year
  Sex: Female
  Weight: 57 kg

DRUGS (8)
  1. CONSTELLA [Concomitant]
     Active Substance: LINACLOTIDE
  2. SENNOSIDES. [Concomitant]
     Active Substance: SENNOSIDES
  3. APO-PRAZO [Suspect]
     Active Substance: PRAZOSIN HYDROCHLORIDE
     Indication: SLEEP DISORDER
     Route: 048
  4. POLYETHYLENE GLYCOL 3350. [Concomitant]
     Active Substance: POLYETHYLENE GLYCOL 3350
  5. APO-PRAZO [Suspect]
     Active Substance: PRAZOSIN HYDROCHLORIDE
     Indication: NIGHTMARE
  6. TEVA-PRAZOSIN [Suspect]
     Active Substance: PRAZOSIN
     Route: 065
  7. APO-PRAZO [Suspect]
     Active Substance: PRAZOSIN HYDROCHLORIDE
     Indication: POST-TRAUMATIC STRESS DISORDER
  8. PAXIL [Suspect]
     Active Substance: PAROXETINE HYDROCHLORIDE

REACTIONS (8)
  - Abdominal discomfort [Recovering/Resolving]
  - Constipation [Recovering/Resolving]
  - Abdominal pain lower [Recovering/Resolving]
  - Ileus paralytic [Recovering/Resolving]
  - Pain [Recovering/Resolving]
  - Vaginal haemorrhage [Recovering/Resolving]
  - Abnormal faeces [Recovering/Resolving]
  - Dysuria [Recovering/Resolving]
